FAERS Safety Report 7583899-X (Version None)
Quarter: 2011Q2

REPORT INFORMATION
  Report Type: 
  Country: None (occurrence: None)
  Receive Date: 20110628
  Receipt Date: 20110628
  Transmission Date: 20111010
  Serious: No
  Sender: FDA-Public Use
  Company Number: None

PATIENT
  Age: 81 Year
  Sex: Female
  Weight: 72.5755 kg

DRUGS (2)
  1. BUTALBITAL/APAP/CAFFEINE 50/325/40 TAB QUALITEST [Suspect]
     Indication: PAIN
     Dosage: 1 TAB EVERY 4 HOURS AS NEEDED DAILY PO
     Route: 048
     Dates: start: 20110614, end: 20110618
  2. SPIRONOLACTONE [Suspect]
     Indication: RENAL FAILURE CHRONIC
     Dosage: 1 TABLET DAILY PO
     Route: 048
     Dates: start: 20110516, end: 20110520

REACTIONS (3)
  - HYPERSENSITIVITY [None]
  - DIARRHOEA [None]
  - GASTROINTESTINAL DISORDER [None]
